FAERS Safety Report 7435109-1 (Version None)
Quarter: 2011Q2

REPORT INFORMATION
  Report Type: 
  Country: None (occurrence: None)
  Receive Date: 20110425
  Receipt Date: 20110411
  Transmission Date: 20111010
  Serious: Yes (Life-Threatening)
  Sender: FDA-Public Use
  Company Number: PHHY2011US27411

PATIENT
  Sex: Female

DRUGS (2)
  1. ANTIARRHYTHMICS [Concomitant]
     Indication: ATRIAL FIBRILLATION
  2. SANDOSTATIN LAR [Suspect]
     Indication: CARCINOID SYNDROME
     Dosage: 30 MG, TIW
     Route: 030
     Dates: start: 20100415

REACTIONS (7)
  - BREAST MASS [None]
  - DIZZINESS [None]
  - NEOPLASM MALIGNANT [None]
  - DIARRHOEA [None]
  - BREAST CANCER [None]
  - ATRIAL FIBRILLATION [None]
  - OEDEMA PERIPHERAL [None]
